FAERS Safety Report 9507601 (Version 2)
Quarter: 2013Q3

REPORT INFORMATION
  Report Type: Spontaneous
  Country: DE (occurrence: DE)
  Receive Date: 20130909
  Receipt Date: 20130930
  Transmission Date: 20140515
  Serious: Yes (Other)
  Sender: FDA-Public Use
  Company Number: DE-ELI_LILLY_AND_COMPANY-DE201309000061

PATIENT
  Age: 57 Year
  Sex: Female

DRUGS (4)
  1. CYMBALTA [Suspect]
     Indication: DEPRESSION
     Dosage: 60 MG, BID
     Route: 048
     Dates: start: 2011, end: 20130822
  2. ATOSIL /00133602/ [Suspect]
     Dosage: UNK, UNKNOWN
     Route: 065
  3. TILIDIN [Suspect]
     Indication: PAIN
     Dosage: UNK, PRN
     Route: 005
  4. TAVOR [Suspect]

REACTIONS (3)
  - Urinary tract obstruction [Recovered/Resolved]
  - Urinary retention [Recovered/Resolved]
  - Abdominal pain [Recovered/Resolved]
